FAERS Safety Report 5372365-8 (Version None)
Quarter: 2007Q2

REPORT INFORMATION
  Report Type: 
  Country: None (occurrence: None)
  Receive Date: 20070627
  Receipt Date: 20070620
  Transmission Date: 20071010
  Serious: Yes (Death, Life-Threatening, Hospitalization, Other)
  Sender: FDA-Public Use
  Company Number: HQWYE242209FEB07

PATIENT
  Sex: Male
  Weight: 41 kg

DRUGS (19)
  1. MYLOTARG [Suspect]
     Indication: ACUTE MYELOID LEUKAEMIA RECURRENT
     Route: 041
     Dates: start: 20061228, end: 20061228
  2. MYLOTARG [Suspect]
     Route: 041
     Dates: start: 20070113, end: 20070113
  3. MAXIPIME [Concomitant]
     Dosage: UNKNOWN
     Route: 041
     Dates: start: 20061231, end: 20070109
  4. FIRSTCIN [Concomitant]
     Dosage: UNKNOWN
     Route: 041
     Dates: start: 20070110, end: 20070131
  5. CIPROFLOXACIN [Concomitant]
     Dosage: 600 MG DAILY
     Route: 041
     Dates: start: 20070103, end: 20070115
  6. NORMAL HUMAN IMMUNOGLOBULIN [Concomitant]
     Dosage: 5 G DAILY
     Route: 041
     Dates: start: 20070104, end: 20070105
  7. TARGOCID [Concomitant]
     Dosage: UNKNOWN
     Route: 041
     Dates: start: 20070127, end: 20070131
  8. FUNGUARD [Concomitant]
     Indication: PROPHYLAXIS
     Dosage: 50 MG DAILY
     Route: 041
     Dates: start: 20070128, end: 20070131
  9. PREDONINE [Concomitant]
     Dosage: 10 MG DAILY
     Route: 041
     Dates: start: 20061228, end: 20070131
  10. BAKTAR [Concomitant]
     Indication: PROPHYLAXIS
     Dosage: ONE DOSE FORM DAILY
     Route: 048
     Dates: start: 20061228, end: 20070126
  11. GASTER [Concomitant]
     Indication: PROPHYLAXIS
     Dosage: 20 MG DAILY
     Route: 048
     Dates: start: 20061228, end: 20070126
  12. VALTREX [Concomitant]
     Indication: PROPHYLAXIS
     Dosage: ONE DOSE FORM DAILY
     Route: 048
     Dates: start: 20061228, end: 20070126
  13. LEVOFLOXACIN [Concomitant]
     Dosage: 4 DOSE FORMS DAILY
     Route: 048
     Dates: start: 20061228, end: 20070102
  14. URSO 250 [Concomitant]
     Indication: PROPHYLAXIS
     Dosage: 6 DOSE FORMS DAILY
     Route: 048
     Dates: start: 20061228, end: 20070117
  15. EPADEL [Concomitant]
     Indication: PROPHYLAXIS
     Dosage: 1800 MG DAILY
     Route: 048
     Dates: start: 20061228, end: 20070126
  16. VFEND [Concomitant]
     Indication: PROPHYLAXIS
     Dosage: 200 MG DAILY
     Route: 048
     Dates: start: 20061228, end: 20070126
  17. RULID [Concomitant]
     Dosage: 300 MG DAILY
     Route: 048
     Dates: start: 20061228, end: 20070126
  18. MUCOSOLVAN [Concomitant]
     Dosage: 45 MG DAILY
     Route: 048
     Dates: start: 20061228, end: 20070126
  19. TOBRACIN [Concomitant]
     Route: 041
     Dates: start: 20061231, end: 20070131

REACTIONS (6)
  - CONDITION AGGRAVATED [None]
  - FIBRIN DEGRADATION PRODUCTS INCREASED [None]
  - LUNG INFECTION [None]
  - NEUTROPENIA [None]
  - OBLITERATIVE BRONCHIOLITIS [None]
  - SEPSIS [None]
